FAERS Safety Report 19875850 (Version 1)
Quarter: 2021Q3

REPORT INFORMATION
  Report Type: Spontaneous
  Country: CN (occurrence: CN)
  Receive Date: 20210924
  Receipt Date: 20210924
  Transmission Date: 20211014
  Serious: Yes (Other)
  Sender: FDA-Public Use
  Company Number: CN-SA-2021SA312745

PATIENT
  Age: 58 Year
  Sex: Female

DRUGS (2)
  1. OXALIPLATIN. [Suspect]
     Active Substance: OXALIPLATIN
     Indication: COLON CANCER
     Dosage: UNK, QCY
  2. CAPECITABINE. [Suspect]
     Active Substance: CAPECITABINE
     Indication: COLON CANCER
     Dosage: UNK

REACTIONS (13)
  - Diarrhoea [Recovered/Resolved]
  - Abdominal pain [Unknown]
  - Anorectal discomfort [Unknown]
  - Pallor [Unknown]
  - Haematochezia [Recovered/Resolved]
  - Fatigue [Recovered/Resolved]
  - Dyspnoea [Recovered/Resolved]
  - Tongue discomfort [Recovered/Resolved]
  - Rectal discharge [Recovered/Resolved]
  - Asthenia [Recovered/Resolved]
  - Pus in stool [Recovered/Resolved]
  - Decreased appetite [Recovered/Resolved]
  - Rectal haemorrhage [Recovered/Resolved]
